FAERS Safety Report 6686705-0 (Version None)
Quarter: 2010Q2

REPORT INFORMATION
  Report Type: 
  Country: None (occurrence: None)
  Receive Date: 20100419
  Receipt Date: 20100409
  Transmission Date: 20101027
  Serious: Yes (Hospitalization)
  Sender: FDA-Public Use
  Company Number: DE-NOVOPROD-292059

PATIENT
  Age: 47 Year
  Sex: Female
  Weight: 115 kg

DRUGS (7)
  1. VICTOZA [Suspect]
     Indication: TYPE 2 DIABETES MELLITUS
     Dosage: .3 MG, QD
     Route: 058
     Dates: start: 20090916, end: 20090916
  2. VICTOZA [Suspect]
     Dosage: .6 MG, QD
     Route: 058
     Dates: start: 20090917, end: 20090919
  3. HUMALOG [Concomitant]
     Dosage: 50 IU, QD
     Route: 058
  4. HUMALOG [Concomitant]
     Dosage: 20 UNK, UNK
     Route: 058
  5. METFORMIN HCL [Concomitant]
     Dosage: 1000 MG, UNK
  6. RAMIPRIL [Concomitant]
     Dosage: 5 MG, UNK
  7. HYDROCHLOROTHIAZIDE [Suspect]
     Dosage: 25 MG, UNK

REACTIONS (1)
  - DIABETIC KETOACIDOSIS [None]
